FAERS Safety Report 9803192 (Version 3)
Quarter: 2014Q1

REPORT INFORMATION
  Report Type: Spontaneous
  Country: US (occurrence: US)
  Receive Date: 20140108
  Receipt Date: 20140228
  Transmission Date: 20141002
  Serious: No
  Sender: FDA-Public Use
  Company Number: US-PFIZER INC-2014002662

PATIENT
  Sex: Female

DRUGS (1)
  1. PREMPRO [Suspect]
     Dosage: 0.3 - 1.5 (UNIT NOT PROVIDED)
     Dates: start: 2010

REACTIONS (3)
  - Nervousness [Unknown]
  - Feeling jittery [Unknown]
  - Condition aggravated [Unknown]
